FAERS Safety Report 7141515-5 (Version None)
Quarter: 2010Q4

REPORT INFORMATION
  Report Type: 
  Country: None (occurrence: None)
  Receive Date: 20101126
  Receipt Date: 20101110
  Transmission Date: 20110411
  Serious: Yes (Other)
  Sender: FDA-Public Use
  Company Number: 1000017388

PATIENT
  Age: 80 Year
  Sex: Female

DRUGS (1)
  1. MEMANTINE [Suspect]
     Dosage: 20 MG (20 MG, 1 IN 1 D), ORAL; (200 MG, ONCE), ORAL
     Route: 048
     Dates: start: 20101014, end: 20101014

REACTIONS (5)
  - ACCIDENTAL OVERDOSE [None]
  - INCORRECT DOSE ADMINISTERED [None]
  - MEDICATION ERROR [None]
  - SOMNOLENCE [None]
  - WRONG TECHNIQUE IN DRUG USAGE PROCESS [None]
